FAERS Safety Report 17881404 (Version 1)
Quarter: 2020Q2

REPORT INFORMATION
  Report Type: Spontaneous
  Country: US (occurrence: US)
  Receive Date: 20200610
  Receipt Date: 20200610
  Transmission Date: 20200714
  Serious: No
  Sender: FDA-Public Use
  Company Number: US-COLLEGIUM PHARMACEUTICAL, INC.-2019CGM00160

PATIENT
  Sex: Female
  Weight: 55.33 kg

DRUGS (5)
  1. XTAMPZA ER [Suspect]
     Active Substance: OXYCODONE
     Indication: SPINAL FUSION SURGERY
     Dosage: 9 MG, 2X/DAY
     Route: 048
     Dates: start: 2019
  2. OXYCODONE IR [Concomitant]
     Active Substance: OXYCODONE
     Dosage: UNK, AS NEEDED
  3. MOTRIN [Concomitant]
     Active Substance: IBUPROFEN
     Dosage: UNK, AS NEEDED
  4. XTAMPZA ER [Suspect]
     Active Substance: OXYCODONE
     Indication: SPINAL FUSION SURGERY
     Dosage: 13.5 MG, 2X/DAY
     Route: 048
     Dates: start: 201904, end: 2019
  5. NAPROXEN. [Concomitant]
     Active Substance: NAPROXEN
     Dosage: UNK, AS NEEDED

REACTIONS (3)
  - Abdominal discomfort [Recovering/Resolving]
  - Off label use [Not Recovered/Not Resolved]
  - Respiratory tract infection [Not Recovered/Not Resolved]

NARRATIVE: CASE EVENT DATE: 2019
